FAERS Safety Report 8564177-9 (Version None)
Quarter: 2012Q3

REPORT INFORMATION
  Report Type: 
  Country: None (occurrence: None)
  Receive Date: 20120803
  Receipt Date: 20120624
  Transmission Date: 20120928
  Serious: Yes (Death, Other)
  Sender: FDA-Public Use
  Company Number: IL-MILLENNIUM PHARMACEUTICALS, INC.-2012-04500

PATIENT

DRUGS (1)
  1. VELCADE [Suspect]
     Indication: MULTIPLE MYELOMA
     Route: 030

REACTIONS (1)
  - DRUG ADMINISTRATION ERROR [None]
